FAERS Safety Report 9032050 (Version 2)
Quarter: 2013Q1

REPORT INFORMATION
  Report Type: Report from Study
  Country: FR (occurrence: FR)
  Receive Date: 20130125
  Receipt Date: 20130201
  Transmission Date: 20140127
  Serious: Yes (Other)
  Sender: FDA-Public Use
  Company Number: PHHO2013FR001454

PATIENT
  Sex: 0

DRUGS (7)
  1. AMN107 [Suspect]
     Indication: CHRONIC MYELOID LEUKAEMIA
     Dosage: 300 MG, BID
     Dates: start: 20100930, end: 20121219
  2. AMN107 [Suspect]
     Dosage: 300 MG, BID
     Dates: start: 20130117
  3. LANZOR [Concomitant]
     Indication: GASTROOESOPHAGEAL REFLUX DISEASE
     Dosage: 15 MG, QD
     Route: 048
     Dates: start: 20120503
  4. SERETIDE [Concomitant]
     Indication: BRONCHITIS CHRONIC
     Dosage: 250 BID
     Dates: start: 20110209
  5. XYZALL [Concomitant]
     Indication: BRONCHITIS
     Dosage: 5 MG, QD
     Route: 048
  6. CITALOPRAM [Concomitant]
     Indication: SLEEP DISORDER
     Dosage: 200 MG, QD
     Route: 048
     Dates: start: 200709
  7. FORLAX [Concomitant]
     Indication: CONSTIPATION
     Dosage: 10 G, QD
     Route: 048
     Dates: start: 20101104

REACTIONS (1)
  - VIIth nerve paralysis [Recovered/Resolved]
